FAERS Safety Report 4302803-0 (Version None)
Quarter: 2004Q1

REPORT INFORMATION
  Report Type: 
  Country: None (occurrence: None)
  Receive Date: 20040126
  Receipt Date: 20031015
  Transmission Date: 20041129
  Serious: No
  Sender: FDA-Public Use
  Company Number: USA031049974

PATIENT
  Age: 14 Year
  Sex: Male

DRUGS (2)
  1. STRATTERA [Suspect]
     Dosage: 80 MG/IN THE MORNING
     Dates: start: 20030101
  2. CLONIDINE [Concomitant]

REACTIONS (1)
  - OESOPHAGEAL PAIN [None]
